FAERS Safety Report 4276455-2 (Version None)
Quarter: 2004Q1

REPORT INFORMATION
  Report Type: 
  Country: None (occurrence: None)
  Receive Date: 20040121
  Receipt Date: 20040121
  Transmission Date: 20041129
  Serious: Yes (Hospitalization)
  Sender: FDA-Public Use
  Company Number: None

PATIENT
  Age: 44 Year
  Sex: Female
  Weight: 54.4316 kg

DRUGS (5)
  1. RISPERDAL [Suspect]
     Dosage: 3 MG Q PM ORAL
     Route: 048
     Dates: start: 20021219, end: 20030103
  2. KEPPRA [Concomitant]
  3. FOLTAX [Concomitant]
  4. FELBANATE [Concomitant]
  5. SYNTHROID [Concomitant]

REACTIONS (9)
  - COMA [None]
  - CONVULSION [None]
  - INSOMNIA [None]
  - MOBILITY DECREASED [None]
  - OEDEMA [None]
  - SKIN INFECTION [None]
  - STATUS EPILEPTICUS [None]
  - TENSION [None]
  - WEIGHT INCREASED [None]
